FAERS Safety Report 25191414 (Version 1)
Quarter: 2025Q2

REPORT INFORMATION
  Report Type: Spontaneous
  Country: US (occurrence: None)
  Receive Date: 20250411
  Receipt Date: 20250411
  Transmission Date: 20250717
  Serious: Yes (unspecified)
  Sender: FDA-CTU
  Company Number: None

PATIENT
  Age: 33 Year
  Sex: Male
  Weight: 101.25 kg

DRUGS (2)
  1. ANTIPERSPIRANT DEODORANT [Suspect]
     Active Substance: ALUMINUM CHLOROHYDRATE
     Indication: Hyperhidrosis
     Route: 061
     Dates: start: 20240401, end: 20250410
  2. ANTIPERSPIRANT DEODORANT [Suspect]
     Active Substance: ALUMINUM CHLOROHYDRATE
     Indication: Skin odour abnormal

REACTIONS (3)
  - Skin infection [None]
  - Skin laceration [None]
  - Hypersensitivity [None]

NARRATIVE: CASE EVENT DATE: 20250411
